FAERS Safety Report 7807971-1 (Version None)
Quarter: 2011Q4

REPORT INFORMATION
  Report Type: 
  Country: None (occurrence: None)
  Receive Date: 20111011
  Receipt Date: 20111011
  Transmission Date: 20120403
  Serious: No
  Sender: FDA-Public Use
  Company Number: None

PATIENT
  Sex: Female
  Weight: 113.39 kg

DRUGS (1)
  1. CHANTIX [Suspect]
     Indication: SMOKING CESSATION THERAPY
     Dosage: .5 DAILY AND 1MG
     Dates: start: 20111008, end: 20111009

REACTIONS (5)
  - DIZZINESS [None]
  - ASTHENIA [None]
  - DYSPNOEA [None]
  - PALPITATIONS [None]
  - VISION BLURRED [None]
